FAERS Safety Report 5385571-3 (Version None)
Quarter: 2007Q3

REPORT INFORMATION
  Report Type: 
  Country: None (occurrence: None)
  Receive Date: 20070712
  Receipt Date: 20070706
  Transmission Date: 20080115
  Serious: Yes (Other)
  Sender: FDA-Public Use
  Company Number: GB-MERCK-0707GBR00042

PATIENT
  Age: 20 Year
  Sex: Female

DRUGS (3)
  1. SINGULAIR [Suspect]
     Route: 048
     Dates: start: 20060316, end: 20060324
  2. BECLOMETHASONE DIPROPIONATE [Concomitant]
     Dates: start: 20060121
  3. ALBUTEROL [Concomitant]
     Dates: start: 20060121

REACTIONS (1)
  - MIGRAINE [None]
